FAERS Safety Report 11724098 (Version 2)
Quarter: 2016Q1

REPORT INFORMATION
  Report Type: Spontaneous
  Country: US (occurrence: US)
  Receive Date: 20151111
  Receipt Date: 20160106
  Transmission Date: 20160525
  Serious: No
  Sender: FDA-Public Use
  Company Number: US-SHIRE-US201513958

PATIENT
  Age: 8 Year
  Sex: Female
  Weight: 23.67 kg

DRUGS (3)
  1. CLONIDINE HCL [Concomitant]
     Active Substance: CLONIDINE HYDROCHLORIDE
     Indication: INSOMNIA
     Dosage: (EVERYNIGHT)0.1 MG, 1X/DAY:QD
     Route: 048
  2. BROMFED DM [Concomitant]
     Active Substance: BROMPHENIRAMINE MALEATE\DEXTROMETHORPHAN HYDROBROMIDE\PSEUDOEPHEDRINE HYDROCHLORIDE
     Indication: UPPER RESPIRATORY TRACT INFECTION
     Dosage: 15 ML, OTHER(15 ML EVERY 12 HOURS)
     Route: 048
  3. VYVANSE [Suspect]
     Active Substance: LISDEXAMFETAMINE DIMESYLATE
     Indication: ATTENTION DEFICIT/HYPERACTIVITY DISORDER
     Dosage: 60 MG, 1X/DAY:QD
     Route: 048
     Dates: start: 20140506, end: 20141104

REACTIONS (3)
  - Aggression [Recovered/Resolved]
  - Anger [Recovered/Resolved]
  - Condition aggravated [Recovered/Resolved]

NARRATIVE: CASE EVENT DATE: 20141104
